FAERS Safety Report 9801627 (Version 2)
Quarter: 2014Q1

REPORT INFORMATION
  Report Type: Report from Study
  Country: CL (occurrence: CL)
  Receive Date: 20140107
  Receipt Date: 20140107
  Transmission Date: 20141002
  Serious: Yes (Hospitalization, Other)
  Sender: FDA-Public Use
  Company Number: PHHY2013CL124976

PATIENT
  Sex: Male

DRUGS (12)
  1. LEPONEX [Suspect]
     Indication: SCHIZOPHRENIA
     Dosage: 2 DF, DAILY
     Route: 048
  2. LEPONEX [Suspect]
     Indication: AGGRESSION
     Dosage: 2 DF, DAILY
  3. LEPONEX [Suspect]
     Dosage: 3 DF, DAILY
     Route: 048
  4. LEPONEX [Suspect]
     Dosage: 2 DF, UNK
  5. LEPONEX [Suspect]
     Dosage: 250 MG, DAILY
     Route: 048
  6. CLONAZEPAM [Concomitant]
     Dosage: 1.5 DF, UNK
  7. ZYPREXA [Concomitant]
     Dosage: UNK UKN, PRN
  8. LORAZEPAM [Concomitant]
     Dosage: UNK UKN, PRN
  9. SERTRALINE [Concomitant]
     Dosage: UNK UKN, UNK
  10. CISORDINOL DEPOT [Concomitant]
     Dosage: UNK UKN, EVERY 14 DAYS
     Route: 030
  11. CISORDINOL DEPOT [Concomitant]
     Dosage: 200 MG, EVERY 14 DAYS
     Route: 030
  12. TONARIL [Concomitant]
     Dosage: UNK UKN, UNK

REACTIONS (12)
  - Psychotic disorder [Unknown]
  - Aggression [Unknown]
  - Schizophrenia [Recovering/Resolving]
  - Impulsive behaviour [Unknown]
  - Disinhibition [Unknown]
  - Speech disorder [Unknown]
  - Eosinophilia [Recovered/Resolved]
  - Extrapyramidal disorder [Unknown]
  - Enuresis [Unknown]
  - Overweight [Not Recovered/Not Resolved]
  - Onychomycosis [Not Recovered/Not Resolved]
  - Paradoxical drug reaction [Unknown]
